FAERS Safety Report 24380751 (Version 8)
Quarter: 2025Q2

REPORT INFORMATION
  Report Type: Spontaneous
  Country: US (occurrence: US)
  Receive Date: 20240930
  Receipt Date: 20250505
  Transmission Date: 20250717
  Serious: Yes (Other)
  Sender: TRAVERE THERAPEUTICS
  Company Number: US-TRAVERE-2024TVT00950

PATIENT
  Age: 67 Year
  Sex: Male

DRUGS (5)
  1. FILSPARI [Suspect]
     Active Substance: SPARSENTAN
     Indication: IgA nephropathy
     Dosage: LOT NUMBER: 1976071, EXPIRY DATE: 31-AUG-2026
     Route: 048
     Dates: start: 202407
  2. FILSPARI [Suspect]
     Active Substance: SPARSENTAN
     Indication: Chronic kidney disease
  3. ATORVASTATIN [Concomitant]
     Active Substance: ATORVASTATIN
  4. ASPIRIN [Concomitant]
     Active Substance: ASPIRIN
  5. CARVEDILOL [Concomitant]
     Active Substance: CARVEDILOL

REACTIONS (19)
  - Glomerular filtration rate decreased [None]
  - Blood creatinine increased [None]
  - Gout [None]
  - Pruritus [None]
  - Dry skin [None]
  - Limb injury [Unknown]
  - Rotator cuff syndrome [Unknown]
  - Fall [Unknown]
  - Bone disorder [Unknown]
  - Peripheral swelling [None]
  - Anaemia [Unknown]
  - Intervertebral disc disorder [Unknown]
  - Blood potassium increased [Unknown]
  - Renal disorder [Unknown]
  - Abdominal discomfort [Unknown]
  - Wheezing [None]
  - Renal cyst [Unknown]
  - Pain [None]
  - Fatigue [None]

NARRATIVE: CASE EVENT DATE: 20241216
